FAERS Safety Report 11288090 (Version 2)
Quarter: 2015Q3

REPORT INFORMATION
  Report Type: Spontaneous
  Country: FR (occurrence: FR)
  Receive Date: 20150721
  Receipt Date: 20150812
  Transmission Date: 20151125
  Serious: Yes (Hospitalization)
  Sender: FDA-Public Use
  Company Number: FR-BIAL, PORTELA + CA S.A.-BIAL-03038

PATIENT
  Age: 81 Year
  Sex: Male

DRUGS (6)
  1. CRESTOR [Concomitant]
     Active Substance: ROSUVASTATIN CALCIUM
  2. ZEBINIX (ESLICARBAZEPINE ACETATE) [Suspect]
     Active Substance: ESLICARBAZEPINE ACETATE
     Indication: TEMPORAL LOBE EPILEPSY
     Dosage: 800 MG, DAILY
     Route: 048
     Dates: start: 20150125, end: 2015
  3. ZEBINIX (ESLICARBAZEPINE ACETATE) [Suspect]
     Active Substance: ESLICARBAZEPINE ACETATE
     Indication: TEMPORAL LOBE EPILEPSY
     Dosage: 1200 MG, DAILY
     Route: 048
     Dates: start: 2015, end: 20150625
  4. KARDEGIC [Concomitant]
     Active Substance: ASPIRIN LYSINE
  5. LERCANIDIPINE [Concomitant]
     Active Substance: LERCANIDIPINE
  6. APROVEL [Concomitant]
     Active Substance: IRBESARTAN

REACTIONS (5)
  - Rash [Recovered/Resolved]
  - Off label use [Unknown]
  - Eosinophilia [Recovered/Resolved]
  - Hyponatraemia [Recovered/Resolved]
  - Confusional state [Recovered/Resolved]

NARRATIVE: CASE EVENT DATE: 20150125
